FAERS Safety Report 10245200 (Version 1)
Quarter: 2014Q2

REPORT INFORMATION
  Report Type: Spontaneous
  Country: US (occurrence: US)
  Receive Date: 20140618
  Receipt Date: 20140618
  Transmission Date: 20141212
  Serious: Yes (Other)
  Sender: FDA-Public Use
  Company Number: US-ENDO PHARMACEUTICALS INC.-OPIR20140001

PATIENT
  Age: 50 Year
  Sex: Male

DRUGS (1)
  1. OPANA [Suspect]
     Indication: DRUG DEPENDENCE
     Dosage: UNKNOWN
     Route: 065

REACTIONS (2)
  - Drug diversion [Unknown]
  - Drug dependence [Not Recovered/Not Resolved]
